FAERS Safety Report 5614074-3 (Version None)
Quarter: 2008Q1

REPORT INFORMATION
  Report Type: 
  Country: None (occurrence: None)
  Receive Date: 20080205
  Receipt Date: 20080123
  Transmission Date: 20080703
  Serious: Yes (Hospitalization)
  Sender: FDA-Public Use
  Company Number: CA-AMGEN-US258769

PATIENT
  Sex: Male

DRUGS (5)
  1. PANITUMUMAB [Suspect]
     Indication: COLORECTAL CANCER
     Route: 042
     Dates: start: 20071206
  2. OXALIPLATIN [Suspect]
     Route: 042
     Dates: start: 20071206
  3. FLUOROURACIL [Suspect]
     Route: 042
     Dates: start: 20071206
  4. LEUCOVORIN CALCIUM [Suspect]
     Route: 042
     Dates: start: 20071206
  5. TUMS [Concomitant]
     Route: 048

REACTIONS (2)
  - DEHYDRATION [None]
  - DIARRHOEA [None]
